FAERS Safety Report 9411238 (Version 2)
Quarter: 2013Q4

REPORT INFORMATION
  Report Type: Report from Study
  Country: US (occurrence: US)
  Receive Date: 20130722
  Receipt Date: 20131122
  Transmission Date: 20140711
  Serious: Yes (Life-Threatening, Other)
  Sender: FDA-Public Use
  Company Number: US-009507513-1307USA009818

PATIENT
  Age: 10 Year
  Sex: Male
  Weight: 28.5 kg

DRUGS (8)
  1. VORINOSTAT [Suspect]
     Indication: NEUROBLASTOMA
     Dosage: 1X /DAY FOR 14 DAYS
     Route: 048
     Dates: start: 20101116, end: 20101129
  2. IOBENGUANE I 131 [Suspect]
     Indication: NEUROBLASTOMA
     Dosage: 375 MCI, ONCE
     Route: 042
     Dates: start: 20101118, end: 20101118
  3. IOBENGUANE I 131 [Suspect]
     Dosage: 660 MCI, ONCE
     Route: 042
     Dates: start: 20130706, end: 20130706
  4. BACTRIM [Concomitant]
     Indication: ANTIBIOTIC PROPHYLAXIS
     Dosage: UNK
     Dates: start: 20130520
  5. DILAUDID [Concomitant]
     Indication: PAIN
     Dosage: UNK
     Dates: start: 20130610
  6. FENTANYL [Concomitant]
     Indication: PAIN
     Dosage: 25MCG/HOUR
     Dates: start: 20130627
  7. CELEXA [Concomitant]
     Indication: ANTIDEPRESSANT THERAPY
     Dosage: UNK
     Dates: start: 20130705
  8. MIRALAX [Concomitant]
     Indication: CONSTIPATION
     Dosage: UNK
     Dates: start: 20130613

REACTIONS (2)
  - Acute myeloid leukaemia [Not Recovered/Not Resolved]
  - Myelodysplastic syndrome [Unknown]
